FAERS Safety Report 6760146-X (Version None)
Quarter: 2010Q2

REPORT INFORMATION
  Report Type: 
  Country: None (occurrence: None)
  Receive Date: 20100524
  Receipt Date: 20100122
  Transmission Date: 20101027
  Serious: No
  Sender: FDA-Public Use
  Company Number: 006035

PATIENT
  Sex: Male

DRUGS (3)
  1. CIMZIA [Suspect]
     Indication: CROHN'S DISEASE
     Dosage: 400 MG SUBCUTANEOUS
     Route: 058
     Dates: start: 20090120
  2. PREDNISONE [Concomitant]
  3. DICYCLOVERINE [Concomitant]

REACTIONS (2)
  - ABDOMINAL RIGIDITY [None]
  - DIARRHOEA HAEMORRHAGIC [None]
